FAERS Safety Report 16095635 (Version 3)
Quarter: 2019Q1

REPORT INFORMATION
  Report Type: Spontaneous
  Country: DE (occurrence: DE)
  Receive Date: 20190320
  Receipt Date: 20190329
  Transmission Date: 20190418
  Serious: Yes (Life-Threatening, Other)
  Sender: FDA-Public Use
  Company Number: DE-BEH-2019100363

PATIENT
  Age: 68 Year
  Sex: Male

DRUGS (3)
  1. IBRUTINIB [Concomitant]
     Active Substance: IBRUTINIB
     Indication: TUMOUR TREATING FIELDS THERAPY
     Dosage: UNK
     Route: 065
     Dates: start: 201805
  2. PRIVIGEN [Suspect]
     Active Substance: HUMAN IMMUNOGLOBULIN G
     Indication: IMMUNODEFICIENCY
     Dosage: 10 G, UNK
     Route: 042
     Dates: start: 20190227, end: 20190227
  3. PRIVIGEN [Suspect]
     Active Substance: HUMAN IMMUNOGLOBULIN G
     Indication: SECONDARY IMMUNODEFICIENCY

REACTIONS (10)
  - Pruritus [Unknown]
  - Troponin T increased [Unknown]
  - Tachycardia [Unknown]
  - Tachypnoea [Unknown]
  - Pulmonary oedema [Unknown]
  - Bronchospasm [Unknown]
  - Dyspnoea [Unknown]
  - Left ventricular dysfunction [Unknown]
  - Respiratory failure [Not Recovered/Not Resolved]
  - Hypersensitivity [Unknown]

NARRATIVE: CASE EVENT DATE: 201902
